FAERS Safety Report 6030635-4 (Version None)
Quarter: 2009Q1

REPORT INFORMATION
  Report Type: 
  Country: None (occurrence: None)
  Receive Date: 20090106
  Receipt Date: 20090106
  Transmission Date: 20090719
  Serious: Yes (Life-Threatening, Hospitalization)
  Sender: FDA-Public Use
  Company Number: None

PATIENT
  Age: 6 Year
  Sex: Female
  Weight: 17.6 kg

DRUGS (1)
  1. BOTULINUM TOXIN [Suspect]
     Indication: SALIVARY HYPERSECRETION
     Dosage: 25UNITS/SYRINGE X 4 SYRINGES IM
     Route: 030
     Dates: start: 20081226, end: 20081226

REACTIONS (4)
  - CHOKING [None]
  - DYSPHAGIA [None]
  - PNEUMONIA ASPIRATION [None]
  - RETCHING [None]
